FAERS Safety Report 16507611 (Version 3)
Quarter: 2019Q3

REPORT INFORMATION
  Report Type: Spontaneous
  Country: CH (occurrence: CH)
  Receive Date: 20190702
  Receipt Date: 20190801
  Transmission Date: 20191004
  Serious: Yes (Other)
  Sender: FDA-Public Use
  Company Number: CH-ALK-ABELLO A/S-2019AA002101

PATIENT

DRUGS (2)
  1. PHARMALGEN APIS MELLIFERA [Suspect]
     Active Substance: APIS MELLIFERA
     Indication: PRODUCT USED FOR UNKNOWN INDICATION
     Dosage: 200 MICROGRAM
     Route: 058
     Dates: start: 20171101
  2. PHARMALGEN APIS MELLIFERA [Suspect]
     Active Substance: APIS MELLIFERA
     Dosage: 100 MICROGRAM
     Dates: start: 20190607

REACTIONS (4)
  - Incorrect dose administered [Unknown]
  - Anaphylactic reaction [Recovered/Resolved]
  - Anaphylactic reaction [Recovered/Resolved]
  - Inappropriate schedule of product administration [Unknown]

NARRATIVE: CASE EVENT DATE: 20190426
